FAERS Safety Report 8909882 (Version 1)
Quarter: 2012Q4

REPORT INFORMATION
  Report Type: 
  Country: US (occurrence: US)
  Receive Date: 20121115
  Receipt Date: 20121115
  Transmission Date: 20130627
  Serious: No
  Sender: FDA-Public Use
  Company Number: US-PFIZER INC-2012284454

PATIENT
  Age: 42 Year
  Sex: Male
  Weight: 113 kg

DRUGS (2)
  1. LYRICA [Suspect]
     Indication: MULTIPLE SCLEROSIS
     Dosage: 300 mg, 2x/day
  2. SERTRALINE HYDROCHLORIDE [Concomitant]
     Dosage: 100 mg, daily

REACTIONS (2)
  - Accident [Unknown]
  - Drug screen false positive [Unknown]
